FAERS Safety Report 21375468 (Version 5)
Quarter: 2023Q2

REPORT INFORMATION
  Report Type: Other
  Country: CA (occurrence: CA)
  Receive Date: 20220926
  Receipt Date: 20230526
  Transmission Date: 20230721
  Serious: Yes (Death, Life-Threatening, Hospitalization, Congenital Anomaly, Other)
  Sender: FDA-Public Use
  Company Number: CA-GLENMARK PHARMACEUTICALS-2022GMK075098

PATIENT

DRUGS (63)
  1. TOPIRAMATE [Suspect]
     Active Substance: TOPIRAMATE
     Indication: Status epilepticus
     Dosage: UNK
     Route: 065
  2. ISOFLURANE [Suspect]
     Active Substance: ISOFLURANE
     Indication: Status epilepticus
     Dosage: UNK
  3. ISOFLURANE [Suspect]
     Active Substance: ISOFLURANE
     Indication: Status epilepticus
     Route: 065
  4. CLOBAZAM [Suspect]
     Active Substance: CLOBAZAM
     Indication: Status epilepticus
     Dosage: UNK
     Route: 065
  5. CLOBAZAM [Suspect]
     Active Substance: CLOBAZAM
     Dosage: UNK
     Route: 030
  6. CLOBAZAM [Suspect]
     Active Substance: CLOBAZAM
     Indication: Status epilepticus
     Dosage: UNK
     Route: 030
  7. DEXAMETHASONE [Suspect]
     Active Substance: DEXAMETHASONE
     Indication: Status epilepticus
     Dosage: UNK, (FORMULATION: SOLUTION OPHTHALMIC)
     Route: 065
  8. DEXAMETHASONE [Suspect]
     Active Substance: DEXAMETHASONE
     Indication: Status epilepticus
     Dosage: UNK
     Route: 065
  9. HUMAN IMMUNOGLOBULIN G [Suspect]
     Active Substance: HUMAN IMMUNOGLOBULIN G
     Indication: Status epilepticus
     Dosage: UNK
     Route: 065
  10. HUMAN IMMUNOGLOBULIN G [Suspect]
     Active Substance: HUMAN IMMUNOGLOBULIN G
     Dosage: UNK
     Route: 042
  11. HUMAN IMMUNOGLOBULIN G [Suspect]
     Active Substance: HUMAN IMMUNOGLOBULIN G
     Dosage: UNK
     Route: 030
  12. HUMAN IMMUNOGLOBULIN G [Suspect]
     Active Substance: HUMAN IMMUNOGLOBULIN G
     Indication: Status epilepticus
     Dosage: UNK
     Route: 042
  13. ISOFLURANE [Suspect]
     Active Substance: ISOFLURANE
     Indication: Status epilepticus
     Dosage: UNK
  14. ISOFLURANE [Suspect]
     Active Substance: ISOFLURANE
     Dosage: UNK
  15. KETAMINE HYDROCHLORIDE [Suspect]
     Active Substance: KETAMINE HYDROCHLORIDE
     Indication: Status epilepticus
     Dosage: UNK
     Route: 030
  16. KETAMINE HYDROCHLORIDE [Suspect]
     Active Substance: KETAMINE HYDROCHLORIDE
     Indication: Status epilepticus
     Dosage: UNK
     Route: 030
  17. LACOSAMIDE [Suspect]
     Active Substance: LACOSAMIDE
     Indication: Status epilepticus
     Dosage: UNK
     Route: 065
  18. LACOSAMIDE [Suspect]
     Active Substance: LACOSAMIDE
     Dosage: UNK
     Route: 065
  19. LEVETIRACETAM [Suspect]
     Active Substance: LEVETIRACETAM
     Indication: Status epilepticus
     Dosage: 1000 MILLIGRAM, 1 EVERY 1 DAYS
     Route: 048
  20. LEVETIRACETAM [Suspect]
     Active Substance: LEVETIRACETAM
     Indication: Generalised tonic-clonic seizure
     Dosage: UNK
     Route: 065
  21. LEVETIRACETAM [Suspect]
     Active Substance: LEVETIRACETAM
     Dosage: UNK
     Route: 065
  22. LORAZEPAM [Suspect]
     Active Substance: LORAZEPAM
     Indication: Generalised tonic-clonic seizure
     Dosage: UNK
     Route: 065
  23. LORAZEPAM [Suspect]
     Active Substance: LORAZEPAM
     Indication: Status epilepticus
     Dosage: UNK
     Route: 065
  24. MAGNESIUM SULFATE [Suspect]
     Active Substance: MAGNESIUM SULFATE
     Indication: Status epilepticus
     Dosage: UNK
     Route: 065
  25. MIDAZOLAM [Suspect]
     Active Substance: MIDAZOLAM
     Indication: Status epilepticus
     Dosage: UNK
     Route: 030
  26. MIDAZOLAM [Suspect]
     Active Substance: MIDAZOLAM
     Dosage: UNK
     Route: 065
  27. MIDAZOLAM [Suspect]
     Active Substance: MIDAZOLAM
     Indication: Status epilepticus
     Route: 065
  28. OXCARBAZEPINE [Suspect]
     Active Substance: OXCARBAZEPINE
     Indication: Status epilepticus
     Dosage: 100.0 MILLIGRAM, 1 EVERY 1 HOURS
     Route: 065
  29. OXCARBAZEPINE [Suspect]
     Active Substance: OXCARBAZEPINE
     Dosage: UNK
     Route: 065
  30. PENTOBARBITAL [Suspect]
     Active Substance: PENTOBARBITAL
     Indication: Status epilepticus
     Dosage: UNK
     Route: 042
  31. PENTOBARBITAL [Suspect]
     Active Substance: PENTOBARBITAL
     Indication: Generalised tonic-clonic seizure
     Dosage: UNK
     Route: 065
  32. PENTOBARBITAL [Suspect]
     Active Substance: PENTOBARBITAL
     Dosage: UNK
     Route: 065
  33. PROPOFOL [Suspect]
     Active Substance: PROPOFOL
     Indication: Status epilepticus
     Dosage: 13 MILLIGRAM PER KILOGRAM, 1 EVERY 1 HOURS
     Route: 065
  34. PROPOFOL [Suspect]
     Active Substance: PROPOFOL
     Dosage: UNK, 1 EVERY 1 HOURS
     Route: 065
  35. PROPOFOL [Suspect]
     Active Substance: PROPOFOL
     Dosage: UNK
     Route: 065
  36. VALPROIC ACID [Suspect]
     Active Substance: VALPROIC ACID
     Indication: Status epilepticus
     Dosage: UNK
     Route: 065
  37. HUMAN IMMUNOGLOBULIN G [Suspect]
     Active Substance: HUMAN IMMUNOGLOBULIN G
     Indication: Product used for unknown indication
     Dosage: UNK
     Route: 030
  38. KEPPRA [Suspect]
     Active Substance: LEVETIRACETAM
     Indication: Status epilepticus
     Dosage: UNK
     Route: 065
  39. KEPPRA [Suspect]
     Active Substance: LEVETIRACETAM
     Indication: Off label use
  40. KEPPRA [Suspect]
     Active Substance: LEVETIRACETAM
     Indication: Generalised tonic-clonic seizure
  41. LEVETIRACETAM [Suspect]
     Active Substance: LEVETIRACETAM
     Indication: Status epilepticus
     Dosage: 1000 MILLIGRAM, 1 EVERY 1 DAYS
     Route: 048
  42. LEVETIRACETAM [Suspect]
     Active Substance: LEVETIRACETAM
     Indication: Generalised tonic-clonic seizure
     Dosage: UNK
     Route: 065
  43. MAGNESIUM [Suspect]
     Active Substance: MAGNESIUM
     Indication: Dialysis
     Dosage: UNK
     Route: 065
  44. MIDAZOLAM HYDROCHLORIDE [Suspect]
     Active Substance: MIDAZOLAM HYDROCHLORIDE
     Indication: Status epilepticus
     Dosage: UNK
     Route: 065
  45. MIDAZOLAM HYDROCHLORIDE [Suspect]
     Active Substance: MIDAZOLAM HYDROCHLORIDE
     Indication: Seizure
     Dosage: UNK
     Route: 030
  46. VIMPAT [Suspect]
     Active Substance: LACOSAMIDE
     Indication: Status epilepticus
     Dosage: UNK
     Route: 065
  47. VIMPAT [Suspect]
     Active Substance: LACOSAMIDE
     Indication: Off label use
     Dosage: UNK
     Route: 065
  48. LEVETIRACETAM [Suspect]
     Active Substance: LEVETIRACETAM
     Indication: Status epilepticus
     Dosage: UNK
     Route: 065
  49. LEVETIRACETAM [Suspect]
     Active Substance: LEVETIRACETAM
     Indication: Generalised tonic-clonic seizure
     Dosage: 1000 MILLIGRAM, 1 EVERY 1 DAYS
     Route: 065
  50. KEPPRA [Suspect]
     Active Substance: LEVETIRACETAM
     Indication: Status epilepticus
     Dosage: UNK
     Route: 065
  51. KEPPRA [Suspect]
     Active Substance: LEVETIRACETAM
     Indication: Off label use
     Dosage: 1000 MILLIGRAM, 1 EVERY 1 DAYS
     Route: 048
  52. KEPPRA [Suspect]
     Active Substance: LEVETIRACETAM
     Indication: Generalised tonic-clonic seizure
  53. FORANE [Suspect]
     Active Substance: ISOFLURANE
     Indication: Status epilepticus
     Dosage: UNK, (FORMULATION: LIQUID INHALATION)
     Route: 065
  54. PHENYTOIN [Suspect]
     Active Substance: PHENYTOIN
     Indication: Status epilepticus
     Dosage: UNK
     Route: 065
  55. PROPOFOL [Suspect]
     Active Substance: PROPOFOL
     Indication: Status epilepticus
     Dosage: UNK, 1 EVERY 1 HOURS
     Route: 065
  56. MAGNESIUM CARBONATE [Suspect]
     Active Substance: MAGNESIUM CARBONATE
     Indication: Product used for unknown indication
     Dosage: UNK
     Route: 065
  57. DIPRIVAN [Suspect]
     Active Substance: PROPOFOL
     Indication: Status epilepticus
     Dosage: 13 MILLIGRAM PER KILOGRAM, 1 EVERY 1 HOURS, (1% 20ML, 50ML, 100ML SINGLE USE VIAL) FORMULATION: EMUL
     Route: 041
  58. DIPRIVAN [Suspect]
     Active Substance: PROPOFOL
     Indication: Status epilepticus
     Dosage: UNK, (1% 20ML, 50ML, 100ML SINGLE USE VIAL)
     Route: 041
  59. ACYCLOVIR [Concomitant]
     Active Substance: ACYCLOVIR
     Indication: Product used for unknown indication
     Dosage: UNK
     Route: 065
  60. CEFTRIAXONE [Concomitant]
     Active Substance: CEFTRIAXONE
     Indication: Product used for unknown indication
     Dosage: UNK
     Route: 065
  61. METHYLPREDNISOLONE [Concomitant]
     Active Substance: METHYLPREDNISOLONE
     Indication: Product used for unknown indication
     Dosage: UNK
     Route: 065
  62. CEFTRIAXONE SODIUM [Concomitant]
     Active Substance: CEFTRIAXONE SODIUM
     Indication: Product used for unknown indication
     Dosage: UNK
     Route: 065
  63. CEFTRIAXONE SODIUM [Concomitant]
     Active Substance: CEFTRIAXONE SODIUM
     Dosage: UNK
     Route: 065

REACTIONS (23)
  - Antinuclear antibody positive [Fatal]
  - Arrhythmia [Fatal]
  - Blood creatine phosphokinase increased [Fatal]
  - Blood gases abnormal [Fatal]
  - Blood lactic acid increased [Fatal]
  - CSF oligoclonal band present [Fatal]
  - Drug hypersensitivity [Fatal]
  - Electrocardiogram QT prolonged [Fatal]
  - Encephalitis [Fatal]
  - Gene mutation [Fatal]
  - Metabolic acidosis [Fatal]
  - Mitochondrial DNA mutation [Fatal]
  - Multiple-drug resistance [Fatal]
  - Partial seizures [Fatal]
  - Pleocytosis [Fatal]
  - Propofol infusion syndrome [Fatal]
  - Rash [Fatal]
  - Shock [Fatal]
  - Status epilepticus [Fatal]
  - Off label use [Fatal]
  - Product substitution issue [Fatal]
  - Drug ineffective [Fatal]
  - Drug ineffective for unapproved indication [Fatal]
